FAERS Safety Report 8126335-7 (Version None)
Quarter: 2012Q1

REPORT INFORMATION
  Report Type: 
  Country: None (occurrence: None)
  Receive Date: 20120209
  Receipt Date: 20120202
  Transmission Date: 20120608
  Serious: Yes (Hospitalization)
  Sender: FDA-Public Use
  Company Number: IT-B.I. PHARMACEUTICALS,INC./RIDGEFIELD-2012-IT-00031IT

PATIENT
  Sex: Female

DRUGS (3)
  1. MELOXICAM [Suspect]
  2. ALL OTHER THERAPEUTIC PRODUCTS [Concomitant]
  3. ACETAMINOPHEN [Suspect]

REACTIONS (2)
  - THROMBOCYTOPENIC PURPURA [None]
  - HAEMORRHAGIC DIATHESIS [None]
